FAERS Safety Report 13964212 (Version 1)
Quarter: 2017Q3

REPORT INFORMATION
  Report Type: Spontaneous
  Country: AU (occurrence: AU)
  Receive Date: 20170913
  Receipt Date: 20170913
  Transmission Date: 20171128
  Serious: Yes (Death, Other)
  Sender: FDA-Public Use
  Company Number: AU-009507513-1709AUS003858

PATIENT
  Sex: Male

DRUGS (1)
  1. PEMBROLIZUMAB. [Suspect]
     Active Substance: PEMBROLIZUMAB
     Dosage: 50 MG, UNK

REACTIONS (1)
  - Death [Fatal]
